FAERS Safety Report 4896741-2 (Version None)
Quarter: 2006Q1

REPORT INFORMATION
  Report Type: 
  Country: None (occurrence: None)
  Receive Date: 20060131
  Receipt Date: 20060125
  Transmission Date: 20060701
  Serious: Yes (Other)
  Sender: FDA-Public Use
  Company Number: 2006AP00445

PATIENT

DRUGS (2)
  1. OMEPRAZOLE [Suspect]
     Route: 048
  2. PARIET [Concomitant]

REACTIONS (2)
  - DRUG INEFFECTIVE [None]
  - HAEMATEMESIS [None]
